FAERS Safety Report 6303815-8 (Version None)
Quarter: 2009Q3

REPORT INFORMATION
  Report Type: 
  Country: None (occurrence: None)
  Receive Date: 20090807
  Receipt Date: 20090807
  Transmission Date: 20100115
  Serious: No
  Sender: FDA-Public Use
  Company Number: None

PATIENT
  Age: 50 Year
  Sex: Male
  Weight: 83.9154 kg

DRUGS (4)
  1. TERBINAFINE HCL [Suspect]
     Indication: ONYCHOMYCOSIS
     Dosage: 250MG DAILY 047
     Dates: start: 20090715, end: 20090719
  2. ZETIA [Concomitant]
  3. LOTRONEX [Concomitant]
  4. TEKTURNA [Concomitant]

REACTIONS (3)
  - HEADACHE [None]
  - PHOTOPHOBIA [None]
  - PRODUCT SUBSTITUTION ISSUE [None]
